FAERS Safety Report 19118514 (Version 1)
Quarter: 2021Q2

REPORT INFORMATION
  Report Type: Report from Study
  Country: BR (occurrence: BR)
  Receive Date: 20210410
  Receipt Date: 20210410
  Transmission Date: 20210717
  Serious: Yes (Other)
  Sender: FDA-Public Use
  Company Number: BR-TAKEDA-BR202024199

PATIENT
  Age: 5 Year
  Sex: Male
  Weight: 18 kg

DRUGS (4)
  1. HEMO?8R [Suspect]
     Active Substance: ANTIHEMOPHILIC FACTOR, HUMAN RECOMBINANT
     Dosage: 5000 INTERNATIONAL UNIT
     Route: 042
     Dates: start: 20161110
  2. PARACETAMOL [Concomitant]
     Active Substance: ACETAMINOPHEN
     Indication: PAIN
  3. ALIVIUM [IBUPROFEN] [Concomitant]
     Active Substance: IBUPROFEN
     Indication: PAIN
  4. HEMO?8R [Suspect]
     Active Substance: ANTIHEMOPHILIC FACTOR, HUMAN RECOMBINANT
     Indication: FACTOR VIII DEFICIENCY
     Dosage: 500 INTERNATIONAL UNIT, 3/WEEK
     Route: 042

REACTIONS (7)
  - Gingivitis [Recovered/Resolved]
  - Joint swelling [Recovered/Resolved]
  - Road traffic accident [Recovered/Resolved]
  - Tooth infection [Recovered/Resolved]
  - Contusion [Recovered/Resolved]
  - Agitation [Recovered/Resolved]
  - Mass [Recovered/Resolved]

NARRATIVE: CASE EVENT DATE: 20210311
